FAERS Safety Report 15744769 (Version 1)
Quarter: 2018Q4

REPORT INFORMATION
  Report Type: Spontaneous
  Country: FR (occurrence: FR)
  Receive Date: 20181220
  Receipt Date: 20181220
  Transmission Date: 20190205
  Serious: Yes (Other)
  Sender: FDA-Public Use
  Company Number: FR-TEVA-2018-FR-987304

PATIENT
  Age: 63 Year
  Sex: Male

DRUGS (7)
  1. ETOPOSIDE. [Suspect]
     Active Substance: ETOPOSIDE
     Indication: LYMPHOMA
     Route: 042
     Dates: start: 20180926, end: 20180930
  2. CYTARABINE. [Suspect]
     Active Substance: CYTARABINE
     Indication: LYMPHOMA
     Route: 037
     Dates: start: 20180921
  3. METHOTREXATE. [Suspect]
     Active Substance: METHOTREXATE
     Indication: LYMPHOMA
     Dosage: NOT INFORMED
     Route: 037
     Dates: start: 20180921, end: 20181019
  4. ONDANSETRON [Concomitant]
     Active Substance: ONDANSETRON
  5. CYCLOPHOSPHAMIDE. [Suspect]
     Active Substance: CYCLOPHOSPHAMIDE
     Indication: LYMPHOMA
     Route: 042
     Dates: start: 20180926, end: 20180930
  6. ATRIANCE [Suspect]
     Active Substance: NELARABINE
     Indication: LYMPHOMA
     Route: 042
     Dates: start: 20180926, end: 20180930
  7. HYDROCORTANCYL [Suspect]
     Active Substance: PREDNISONE
     Indication: LYMPHOMA
     Route: 037
     Dates: start: 20180921

REACTIONS (2)
  - Herpes simplex [Recovered/Resolved]
  - Mucosal inflammation [Recovered/Resolved]

NARRATIVE: CASE EVENT DATE: 201810
